FAERS Safety Report 5869751-6 (Version None)
Quarter: 2008Q3

REPORT INFORMATION
  Report Type: 
  Country: None (occurrence: None)
  Receive Date: 20080904
  Receipt Date: 20080820
  Transmission Date: 20090109
  Serious: Yes (Hospitalization)
  Sender: FDA-Public Use
  Company Number: FR-ELI_LILLY_AND_COMPANY-FR200805003581

PATIENT
  Age: 93 Year
  Sex: Female
  Weight: 49 kg

DRUGS (6)
  1. FORTEO [Suspect]
     Indication: OSTEOPOROSIS
     Dosage: 20 UG, DAILY (1/D)
     Route: 058
     Dates: start: 20071031, end: 20080401
  2. PREVISCAN [Concomitant]
     Indication: PROSTHESIS USER
     Dosage: 0.5 MG, DAILY (1/D)
     Route: 048
     Dates: start: 19860101
  3. IRBESARTAN [Concomitant]
     Indication: HYPERTENSION
     Dosage: 300 MG, DAILY (1/D)
     Route: 048
     Dates: start: 19970101
  4. LASIX [Concomitant]
     Indication: CARDIAC FAILURE
     Dosage: 20 MG, DAILY (1/D)
     Route: 048
     Dates: start: 20060101
  5. ZANIDIP [Concomitant]
     Indication: HYPERTENSION
     Dosage: 10 MG, DAILY (1/D)
     Route: 048
     Dates: start: 20040101
  6. CORDARONE [Concomitant]
     Indication: ATRIAL FIBRILLATION
     Dosage: 1 D/F ( ONE TABLET), DAILY (1/D)
     Route: 048
     Dates: start: 20080101

REACTIONS (1)
  - CARDIAC FAILURE CONGESTIVE [None]
